FAERS Safety Report 9558241 (Version 3)
Quarter: 2014Q2

REPORT INFORMATION
  Report Type: Spontaneous
  Country: US (occurrence: US)
  Receive Date: 20130926
  Receipt Date: 20140414
  Transmission Date: 20141212
  Serious: Yes (Other)
  Sender: FDA-Public Use
  Company Number: US-ALLERGAN-1314673US

PATIENT
  Age: 42 Year
  Sex: Female

DRUGS (2)
  1. RESTASIS [Suspect]
     Indication: DRY EYE
     Dosage: 2 GTT, SINGLE
     Route: 047
     Dates: start: 20130913, end: 20130913
  2. LOTEMAX [Concomitant]
     Indication: DRY EYE
     Dosage: UNK
     Route: 047
     Dates: start: 20130813, end: 20130912

REACTIONS (8)
  - Visual acuity reduced [Not Recovered/Not Resolved]
  - Corneal oedema [Not Recovered/Not Resolved]
  - Corneal dystrophy [Not Recovered/Not Resolved]
  - Eyelid ptosis [Unknown]
  - Eyelid oedema [Recovering/Resolving]
  - Eye irritation [Unknown]
  - Ocular hyperaemia [Recovering/Resolving]
  - Vision blurred [Unknown]
